FAERS Safety Report 8438854-4 (Version None)
Quarter: 2012Q2

REPORT INFORMATION
  Report Type: 
  Country: None (occurrence: None)
  Receive Date: 20120323
  Receipt Date: 20110915
  Transmission Date: 20120825
  Serious: Yes (Other)
  Sender: FDA-Public Use
  Company Number: 163-21880-11062613

PATIENT
  Age: 66 Year
  Sex: Female
  Weight: 63.9572 kg

DRUGS (7)
  1. ASPIRIN [Concomitant]
  2. TRICOR [Concomitant]
  3. CLONAZEPAM [Concomitant]
  4. CYMBALTA [Concomitant]
  5. REVLIMID [Suspect]
     Indication: MULTIPLE MYELOMA
     Dosage: 10 MG, 1 IN 1 D, PO
     Route: 048
     Dates: start: 20110321, end: 20110513
  6. EXJADE [Concomitant]
  7. AMARYL [Concomitant]

REACTIONS (2)
  - WHITE BLOOD CELL COUNT DECREASED [None]
  - PANCYTOPENIA [None]
